FAERS Safety Report 25515644 (Version 2)
Quarter: 2025Q3

REPORT INFORMATION
  Report Type: Report from Study
  Country: US (occurrence: US)
  Receive Date: 20250704
  Receipt Date: 20250910
  Transmission Date: 20251021
  Serious: Yes (Death, Hospitalization, Other)
  Sender: TAKEDA
  Company Number: US-TAKEDA-2025TUS059233

PATIENT
  Sex: Female
  Weight: 59 kg

DRUGS (2)
  1. APADAMTASE ALFA [Suspect]
     Active Substance: APADAMTASE ALFA
     Indication: Congenital thrombotic thrombocytopenic purpura
  2. APADAMTASE ALFA [Suspect]
     Active Substance: APADAMTASE ALFA
     Indication: Thrombotic microangiopathy
     Dosage: UNK UNK, Q2WEEKS

REACTIONS (3)
  - Death [Fatal]
  - Device malfunction [Unknown]
  - Weight fluctuation [Unknown]
